FAERS Safety Report 10618702 (Version 1)
Quarter: 2014Q4

REPORT INFORMATION
  Report Type: Spontaneous
  Country: CN (occurrence: CN)
  Receive Date: 20141202
  Receipt Date: 20141202
  Transmission Date: 20150529
  Serious: Yes (Other)
  Sender: FDA-Public Use
  Company Number: CN-BAYER-2014-172051

PATIENT
  Sex: Male

DRUGS (2)
  1. SITAGLIPTIN PHOSPHATE [Concomitant]
     Active Substance: SITAGLIPTIN PHOSPHATE
     Dosage: UNK
  2. GLUCOBAY [Suspect]
     Active Substance: ACARBOSE
     Dosage: UNK

REACTIONS (1)
  - Blood glucose increased [Recovering/Resolving]
